FAERS Safety Report 8440955-1 (Version None)
Quarter: 2012Q2

REPORT INFORMATION
  Report Type: 
  Country: None (occurrence: None)
  Receive Date: 20120615
  Receipt Date: 20110621
  Transmission Date: 20120825
  Serious: No
  Sender: FDA-Public Use
  Company Number: US-NOVEN-11US002673

PATIENT
  Sex: Male

DRUGS (1)
  1. DAYTRANA [Suspect]
     Dosage: 15 MG, 9 HRS, QD
     Route: 062

REACTIONS (4)
  - PRODUCT QUALITY ISSUE [None]
  - ACCIDENTAL EXPOSURE [None]
  - INCORRECT STORAGE OF DRUG [None]
  - NO ADVERSE EVENT [None]
